FAERS Safety Report 10412714 (Version 1)
Quarter: 2014Q2

REPORT INFORMATION
  Report Type: Spontaneous
  Country: US (occurrence: None)
  Receive Date: 20140604
  Receipt Date: 20140604
  Transmission Date: 20141212
  Serious: No
  Sender: FDA-Public Use
  Company Number: 163-POMAL-13102154

PATIENT
  Age: 89 Year
  Sex: Female
  Weight: 61 kg

DRUGS (12)
  1. POMALYST [Suspect]
     Indication: PLASMA CELL MYELOMA
     Dosage: 21 IN 21 D
     Route: 048
     Dates: start: 20130523
  2. CLARITHROMYCIN(CLARITHROMYCIN)(UNKNOWN) [Concomitant]
  3. ASPIRIN(ACETYLSALICYLIC ACID)(UNKNOWN) [Concomitant]
  4. MIRALAX(MACROGOL)(UNKNOWN)? [Concomitant]
  5. TYLENOL EXTRA STRENGTH(PARACETAMOL)(UNKNOWN) [Concomitant]
  6. CITRACAL + D(CITRACAL + D) (UNKNOWN) [Concomitant]
  7. MUCINEX CM(TUSSIN CM)(UNKNOWN) [Concomitant]
  8. GLIPIZIDE ER(GLIPIZIDE)(UNKNOWN) [Concomitant]
  9. ENALAPRIL MALEATE(ENALAPRIL MALEATE)(UNKNOWN) [Concomitant]
  10. CENTRUM SILVER(CENTRUM SILVER)(UNKNOWN) [Concomitant]
  11. HYDROCHLOROTHIAZIDE(HYDROCHLOROTHIAZIDE)(UNKNOWR [Concomitant]
  12. SIMVASTATIN(SIMVASTATIN)(UNKNOWN) [Concomitant]

REACTIONS (2)
  - Dysphonia [None]
  - Fatigue [None]
